FAERS Safety Report 12187017 (Version 2)
Quarter: 2016Q2

REPORT INFORMATION
  Report Type: Report from Study
  Country: DE (occurrence: DE)
  Receive Date: 20160317
  Receipt Date: 20160504
  Transmission Date: 20160815
  Serious: Yes (Death)
  Sender: FDA-Public Use
  Company Number: PHHY2016DE035540

PATIENT
  Sex: Female

DRUGS (7)
  1. AFINITOR [Suspect]
     Active Substance: EVEROLIMUS
     Indication: BREAST CANCER METASTATIC
     Dosage: 5 MG, QD
     Route: 048
     Dates: start: 20141028, end: 20150119
  2. DEXAMETHASONE. [Concomitant]
     Active Substance: DEXAMETHASONE
     Indication: BREAST CANCER
     Dosage: 4 MG, QD
     Route: 042
     Dates: start: 20150318, end: 20150603
  3. TAVEGIL [Concomitant]
     Active Substance: CLEMASTINE FUMARATE
     Indication: BREAST CANCER
     Dosage: 2.68 QD
     Route: 042
     Dates: start: 20150318, end: 20150603
  4. GRANISETRON [Concomitant]
     Active Substance: GRANISETRON
     Indication: BREAST CANCER
     Dosage: 3 MG, QD
     Route: 042
     Dates: start: 20150318, end: 20150603
  5. RANITIDINE. [Concomitant]
     Active Substance: RANITIDINE
     Indication: BREAST CANCER
     Dosage: 5 MG, QD
     Route: 042
     Dates: start: 20150318, end: 20150603
  6. EXEMESTANE. [Concomitant]
     Active Substance: EXEMESTANE
     Indication: BREAST CANCER METASTATIC
     Dosage: 25 MG, QD
     Route: 048
     Dates: start: 20141028, end: 20150119
  7. HEPARIN [Concomitant]
     Active Substance: HEPARIN SODIUM
     Indication: BREAST CANCER
     Dosage: 5000 QD
     Route: 042
     Dates: start: 20150318, end: 20150603

REACTIONS (3)
  - Metastases to bone [Fatal]
  - Breast cancer metastatic [Fatal]
  - Metastases to liver [Fatal]
